FAERS Safety Report 5905347-5 (Version None)
Quarter: 2008Q4

REPORT INFORMATION
  Report Type: 
  Country: None (occurrence: None)
  Receive Date: 20081001
  Receipt Date: 20080919
  Transmission Date: 20090506
  Serious: Yes (Disabling, Other)
  Sender: FDA-Public Use
  Company Number: CA-PFIZER INC-2008067925

PATIENT
  Sex: Female
  Weight: 64.9 kg

DRUGS (1)
  1. CHANTIX [Suspect]
     Indication: EX-TOBACCO USER
     Route: 048
     Dates: start: 20080418

REACTIONS (6)
  - DEPRESSION [None]
  - HEADACHE [None]
  - NERVOUSNESS [None]
  - NIGHTMARE [None]
  - PERSONALITY CHANGE [None]
  - SUICIDAL IDEATION [None]
